FAERS Safety Report 6710597-4 (Version None)
Quarter: 2010Q2

REPORT INFORMATION
  Report Type: 
  Country: None (occurrence: None)
  Receive Date: 20100430
  Receipt Date: 20100415
  Transmission Date: 20101027
  Serious: Yes (Hospitalization, Other)
  Sender: FDA-Public Use
  Company Number: VAL_00382_2010

PATIENT
  Sex: Female

DRUGS (6)
  1. ROCALTROL [Suspect]
     Indication: RENAL FAILURE CHRONIC
     Dosage: (0.25 UG QD ORAL)
     Route: 048
     Dates: start: 20090101, end: 20091023
  2. CALCIUM /01725101/ (CALCIUM SANDOZ-CALCIUM CARBONATE/CALCIUM GLUBIONAT [Suspect]
     Indication: RENAL FAILURE CHRONIC
     Dosage: (1 DF QD ORAL)
     Route: 048
     Dates: start: 20090101, end: 20091023
  3. LASIX /0032601/ [Concomitant]
  4. TRIATEC /00885601/ [Concomitant]
  5. LANSOX [Concomitant]
  6. ARANESP [Concomitant]

REACTIONS (2)
  - CONDUCT DISORDER [None]
  - HYPERCALCAEMIA [None]
